FAERS Safety Report 8840611 (Version 8)
Quarter: 2013Q2

REPORT INFORMATION
  Report Type: Spontaneous
  Country: US (occurrence: US)
  Receive Date: 20121015
  Receipt Date: 20130605
  Transmission Date: 20140414
  Serious: Yes (Hospitalization, Disabling, Other)
  Sender: FDA-Public Use
  Company Number: US-009507513-1210USA003353

PATIENT
  Sex: Female
  Weight: 62.13 kg

DRUGS (3)
  1. FOSAMAX [Suspect]
     Indication: OSTEOPOROSIS
     Dosage: 75 MG, UNK
     Route: 048
     Dates: start: 1997, end: 200809
  2. FOSAMAX [Suspect]
     Dosage: 75 MG, QW
     Route: 048
     Dates: start: 20060818
  3. FOSAMAX [Suspect]
     Dosage: 70 MG, QW
     Route: 048
     Dates: start: 2012

REACTIONS (72)
  - Femur fracture [Not Recovered/Not Resolved]
  - Fall [Unknown]
  - Open reduction of fracture [Unknown]
  - Excoriation [Unknown]
  - Device failure [Unknown]
  - Fall [Unknown]
  - Humerus fracture [Unknown]
  - Rib fracture [Unknown]
  - Sleep disorder [Unknown]
  - Rhinitis allergic [Unknown]
  - Incisional drainage [Unknown]
  - Surgery [Unknown]
  - Hypoacusis [Unknown]
  - Candida infection [Unknown]
  - Haemorrhage [Unknown]
  - Joint effusion [Unknown]
  - Arthrotomy [Unknown]
  - Iron deficiency anaemia [Unknown]
  - Jaundice [Recovering/Resolving]
  - Hypokalaemia [Unknown]
  - Electrolyte substitution therapy [Unknown]
  - Periprosthetic fracture [Unknown]
  - Decreased activity [Recovering/Resolving]
  - Cardiac failure congestive [Unknown]
  - Musculoskeletal pain [Unknown]
  - Musculoskeletal chest pain [Unknown]
  - Constipation [Unknown]
  - Fracture nonunion [Not Recovered/Not Resolved]
  - Coronary artery disease [Unknown]
  - Bundle branch block left [Unknown]
  - Angiopathy [Unknown]
  - Hyperlipidaemia [Unknown]
  - Large intestine polyp [Unknown]
  - Hypertension [Unknown]
  - Oesophageal achalasia [Unknown]
  - Anxiety [Unknown]
  - Appendicectomy [Unknown]
  - Angioplasty [Unknown]
  - Anaemia macrocytic [Unknown]
  - Insomnia [Unknown]
  - Tremor [Recovering/Resolving]
  - Hypercholesterolaemia [Unknown]
  - Weight decreased [Not Recovered/Not Resolved]
  - Gilbert^s syndrome [Unknown]
  - Neutropenia [Unknown]
  - Vitamin D deficiency [Unknown]
  - Joint injection [Unknown]
  - Spinal osteoarthritis [Unknown]
  - Spinal compression fracture [Not Recovered/Not Resolved]
  - Overdose [Unknown]
  - Spinal compression fracture [Unknown]
  - Vertebral foraminal stenosis [Unknown]
  - Body height decreased [Unknown]
  - Spinal cord disorder [Unknown]
  - Stress fracture [Unknown]
  - Thoracic vertebral fracture [Unknown]
  - Contusion [Unknown]
  - Inappropriate schedule of drug administration [Unknown]
  - Tremor [Unknown]
  - Cellulitis [Unknown]
  - Cardiac failure congestive [Unknown]
  - Osteoarthritis [Unknown]
  - Osteoarthritis [Unknown]
  - Osteopenia [Unknown]
  - Treatment failure [Unknown]
  - Hypersensitivity [Unknown]
  - Oedema peripheral [Unknown]
  - Gastrooesophageal reflux disease [Unknown]
  - Drug hypersensitivity [Unknown]
  - Rash [Unknown]
  - Pruritus [Unknown]
  - Drug hypersensitivity [Unknown]
